FAERS Safety Report 10627217 (Version 3)
Quarter: 2015Q2

REPORT INFORMATION
  Report Type: Report from Study
  Country: US (occurrence: US)
  Receive Date: 20141204
  Receipt Date: 20150604
  Transmission Date: 20150821
  Serious: Yes (Hospitalization, Other)
  Sender: FDA-Public Use
  Company Number: US-GILEAD-2014-0125582

PATIENT
  Age: 54 Year
  Sex: Female

DRUGS (16)
  1. PREDNISONE. [Concomitant]
     Active Substance: PREDNISONE
  2. IRON [Concomitant]
     Active Substance: IRON
  3. ASPIRIN                            /00002701/ [Concomitant]
     Active Substance: ASPIRIN
  4. REMODULIN [Concomitant]
     Active Substance: TREPROSTINIL
     Dosage: UNK
     Dates: end: 20150101
  5. NITROGLYCERIN. [Concomitant]
     Active Substance: NITROGLYCERIN
  6. AMBRISENTAN [Suspect]
     Active Substance: AMBRISENTAN
     Indication: COR PULMONALE CHRONIC
  7. TRAMADOL [Concomitant]
     Active Substance: TRAMADOL
  8. DILTIAZEM HYDROCHLORIDE EXTENDED RELEASE [Concomitant]
     Active Substance: DILTIAZEM HYDROCHLORIDE
  9. AMBRISENTAN [Suspect]
     Active Substance: AMBRISENTAN
     Indication: PULMONARY ARTERIAL HYPERTENSION
     Dosage: 10 MG, QD
     Route: 065
     Dates: start: 20110425, end: 20150601
  10. OMEPRAZOLE. [Concomitant]
     Active Substance: OMEPRAZOLE
  11. LISINOPRIL. [Concomitant]
     Active Substance: LISINOPRIL
  12. PLAQUENIL [Concomitant]
     Active Substance: HYDROXYCHLOROQUINE SULFATE
  13. CYMBALTA [Concomitant]
     Active Substance: DULOXETINE HYDROCHLORIDE
  14. FOLIC ACID. [Concomitant]
     Active Substance: FOLIC ACID
  15. VICODIN [Concomitant]
     Active Substance: ACETAMINOPHEN\HYDROCODONE BITARTRATE
  16. SYNTHROID [Concomitant]
     Active Substance: LEVOTHYROXINE SODIUM

REACTIONS (3)
  - Diarrhoea [Unknown]
  - Malnutrition [Not Recovered/Not Resolved]
  - Failure to thrive [Unknown]
